FAERS Safety Report 9500076 (Version 3)
Quarter: 2013Q4

REPORT INFORMATION
  Report Type: Report from Study
  Country: DE (occurrence: DE)
  Receive Date: 20130905
  Receipt Date: 20131226
  Transmission Date: 20140711
  Serious: Yes (Hospitalization, Other)
  Sender: FDA-Public Use
  Company Number: PHHY2013DE097029

PATIENT
  Sex: Female
  Weight: 85 kg

DRUGS (6)
  1. AFINITOR [Suspect]
     Indication: BREAST CANCER METASTATIC
     Dosage: 5 MG, QD
     Route: 048
     Dates: start: 20130729, end: 20130820
  2. AFINITOR [Suspect]
     Dosage: 10 MG, QD
     Route: 048
     Dates: start: 20130821, end: 20130825
  3. AFINITOR [Suspect]
     Dosage: 5 MG, QD
     Route: 048
     Dates: start: 20130826, end: 20130902
  4. EXEMESTANE [Concomitant]
     Indication: BREAST CANCER METASTATIC
     Dosage: 25 MG, QD
     Route: 048
     Dates: start: 20130729, end: 20130902
  5. EDARBI [Concomitant]
     Dosage: 80 MG, QD
     Dates: start: 20130408
  6. CALCIUM D3 [Concomitant]
     Dosage: 1 DF, QD
     Dates: start: 20130712

REACTIONS (2)
  - Blood glucose fluctuation [Recovered/Resolved]
  - Dyspnoea exertional [Recovered/Resolved]
